FAERS Safety Report 16745811 (Version 1)
Quarter: 2019Q4

REPORT INFORMATION
  Report Type: Spontaneous
  Country: US (occurrence: US)
  Receive Date: 20190827
  Receipt Date: 20190827
  Transmission Date: 20200122
  Serious: Yes (Hospitalization)
  Sender: FDA-Public Use
  Company Number: None

PATIENT
  Age: 83 Year
  Sex: Female

DRUGS (2)
  1. UNKNOWN [Concomitant]
     Active Substance: UNSPECIFIED INGREDIENT
  2. ARANESP [Suspect]
     Active Substance: DARBEPOETIN ALFA
     Indication: MYELODYSPLASTIC SYNDROME
     Dosage: ?          OTHER FREQUENCY:Q 2 WEEKS;?
     Route: 058

REACTIONS (1)
  - Platelet count decreased [None]
